FAERS Safety Report 10203632 (Version 1)
Quarter: 2014Q2

REPORT INFORMATION
  Report Type: Spontaneous
  Country: FR (occurrence: None)
  Receive Date: 20140523
  Receipt Date: 20140523
  Transmission Date: 20141212
  Serious: Yes (Other)
  Sender: FDA-Public Use
  Company Number: AXC-2014-000241

PATIENT
  Sex: Female

DRUGS (1)
  1. PYLERA (BISMUTH SUBCITRATE POTASSIUM, METRONIDAZOLE, TETRACYCLINE HYDROCHLORIDE) CAPSULE [Suspect]
     Indication: HELICOBACTER INFECTION

REACTIONS (4)
  - Hepatitis [None]
  - Abdominal pain [None]
  - Dysgeusia [None]
  - Nausea [None]
